FAERS Safety Report 5515105-1 (Version None)
Quarter: 2007Q4

REPORT INFORMATION
  Report Type: 
  Country: None (occurrence: None)
  Receive Date: 20071113
  Receipt Date: 20070105
  Transmission Date: 20080405
  Serious: No
  Sender: FDA-Public Use
  Company Number: A0634506A

PATIENT
  Age: 69 Year
  Sex: Male

DRUGS (8)
  1. COREG [Suspect]
     Dosage: 12.5MG TWICE PER DAY
     Route: 048
  2. LIPITOR [Concomitant]
  3. WELLBUTRIN [Concomitant]
  4. FLONASE [Concomitant]
  5. SPIRIVA [Concomitant]
  6. FLOMAX [Concomitant]
  7. PRILOSEC [Concomitant]
  8. DIOVAN [Concomitant]

REACTIONS (2)
  - BRADYCARDIA [None]
  - DIZZINESS [None]
